FAERS Safety Report 4499672-5 (Version None)
Quarter: 2004Q4

REPORT INFORMATION
  Report Type: 
  Country: None (occurrence: None)
  Receive Date: 20041112
  Receipt Date: 20041104
  Transmission Date: 20050328
  Serious: Yes (Hospitalization)
  Sender: FDA-Public Use
  Company Number: PHBS2004JP14987

PATIENT
  Age: 74 Year
  Sex: Female

DRUGS (3)
  1. LOPRESOR [Suspect]
     Route: 065
  2. THIAMAZOLE [Suspect]
     Route: 065
  3. MEXITIL [Suspect]
     Route: 065

REACTIONS (2)
  - CHOLESTASIS [None]
  - PYREXIA [None]
